FAERS Safety Report 9531706 (Version 1)
Quarter: 2013Q3

REPORT INFORMATION
  Report Type: Spontaneous
  Country: US (occurrence: None)
  Receive Date: 20130917
  Receipt Date: 20130917
  Transmission Date: 20140515
  Serious: Yes (Life-Threatening, Hospitalization)
  Sender: FDA-Public Use
  Company Number: None

PATIENT
  Age: 55 Year
  Sex: Female
  Weight: 119 kg

DRUGS (9)
  1. WARFARIN [Suspect]
     Indication: PULMONARY EMBOLISM
     Route: 048
     Dates: start: 20110319, end: 20110320
  2. ASPIRIN [Concomitant]
  3. DOCUSATE [Concomitant]
  4. HYDROCHLOROTHIAZIDE [Concomitant]
  5. HYDROMORPHONE [Concomitant]
  6. INSULIN ASPART [Concomitant]
  7. KETOROLAC [Concomitant]
  8. RANITIDINE [Concomitant]
  9. VALSARTAN [Concomitant]

REACTIONS (2)
  - Haemoglobin decreased [None]
  - Retroperitoneal haemorrhage [None]
